FAERS Safety Report 20331635 (Version 1)
Quarter: 2022Q1

REPORT INFORMATION
  Report Type: Spontaneous
  Country: US (occurrence: None)
  Receive Date: 20220112
  Receipt Date: 20220112
  Transmission Date: 20220424
  Serious: Yes (Death)
  Sender: FDA-Public Use
  Company Number: None

PATIENT
  Age: 86 Year
  Sex: Male

DRUGS (1)
  1. ELIGARD [Suspect]
     Active Substance: LEUPROLIDE ACETATE
     Indication: Illness
     Dosage: OTHER FREQUENCY : EVERY 4 MONTHS;?
     Route: 058
     Dates: start: 20210609, end: 20210808

REACTIONS (1)
  - Death [None]

NARRATIVE: CASE EVENT DATE: 20210808
